FAERS Safety Report 9925108 (Version 3)
Quarter: 2014Q1

REPORT INFORMATION
  Report Type: Spontaneous
  Country: US (occurrence: US)
  Receive Date: 20140226
  Receipt Date: 20140331
  Transmission Date: 20141002
  Serious: Yes (Other)
  Sender: FDA-Public Use
  Company Number: US-SA-2014SA023036

PATIENT
  Age: 68 Year
  Sex: Female
  Weight: 81.64 kg

DRUGS (5)
  1. LANTUS SOLOSTAR [Suspect]
     Indication: TYPE 2 DIABETES MELLITUS
     Dosage: PRODUCT START DATE-MARCH/APRIL 2013?PRODUCT END DATE-2-3 MONTHS AGO DOSE:45 UNIT(S)
     Route: 051
     Dates: start: 20130419, end: 20130913
  2. LANTUS SOLOSTAR [Suspect]
     Indication: TYPE 2 DIABETES MELLITUS
     Dosage: PRODUCT START DATE-MARCH/APRIL 2013?PRODUCT END DATE-2-3 MONTHS AGO DOSE:45 UNIT(S)
     Route: 051
     Dates: start: 20130419, end: 20130913
  3. SOLOSTAR [Concomitant]
  4. SOLOSTAR [Concomitant]
  5. METFORMIN [Concomitant]
     Indication: BLOOD GLUCOSE
     Route: 065
     Dates: start: 2005

REACTIONS (5)
  - Thyroid disorder [Recovered/Resolved]
  - Oropharyngeal pain [Recovered/Resolved]
  - Pharyngeal oedema [Not Recovered/Not Resolved]
  - Breast tenderness [Recovered/Resolved]
  - Breast enlargement [Recovered/Resolved]
